FAERS Safety Report 26027077 (Version 1)
Quarter: 2025Q4

REPORT INFORMATION
  Report Type: Report from Study
  Country: IL (occurrence: IL)
  Receive Date: 20251111
  Receipt Date: 20251111
  Transmission Date: 20260118
  Serious: Yes (Other)
  Sender: JOHNSON AND JOHNSON
  Company Number: IL-JNJFOC-20251142051

PATIENT

DRUGS (4)
  1. GUSELKUMAB [Suspect]
     Active Substance: GUSELKUMAB
     Indication: Psoriasis
     Route: 065
  2. GUSELKUMAB [Suspect]
     Active Substance: GUSELKUMAB
  3. GUSELKUMAB [Suspect]
     Active Substance: GUSELKUMAB
  4. GUSELKUMAB [Suspect]
     Active Substance: GUSELKUMAB

REACTIONS (3)
  - Cholangitis [Unknown]
  - Septic shock [Unknown]
  - COVID-19 [Unknown]
